FAERS Safety Report 5781591-5 (Version None)
Quarter: 2008Q2

REPORT INFORMATION
  Report Type: 
  Country: None (occurrence: None)
  Receive Date: 20080623
  Receipt Date: 20080609
  Transmission Date: 20081010
  Serious: Yes (Hospitalization)
  Sender: FDA-Public Use
  Company Number: MX-ELI_LILLY_AND_COMPANY-MX200806002355

PATIENT
  Age: 46 Year
  Sex: Male
  Weight: 113 kg

DRUGS (12)
  1. ZYPREXA [Suspect]
     Indication: SCHIZOPHRENIA
     Dosage: 5 MG, UNKNOWN
     Route: 048
     Dates: start: 20020501
  2. ZYPREXA [Suspect]
     Dosage: 20 MG, EACH EVENING
     Route: 048
     Dates: end: 20070414
  3. TOPAMAX [Concomitant]
     Dosage: 100 MG, EACH MORNING
     Route: 048
  4. EFFEXOR [Concomitant]
     Indication: DEPRESSION
     Dosage: 75 MG, EACH MORNING
     Route: 048
  5. ATIVAN [Concomitant]
     Indication: ANXIETY
     Dosage: 2 MG, EACH MORNING
     Route: 048
  6. AKINETON [Concomitant]
     Dosage: 2 MG, EACH MORNING
     Route: 048
  7. MODIODAL [Concomitant]
     Dosage: 200 MG, EACH MORNING
     Route: 048
  8. SINOGAN [Concomitant]
     Indication: SLEEP DISORDER
     Dosage: 25 MG, EACH EVENING
     Route: 048
  9. CLONAZEPAM [Concomitant]
     Dosage: 2 MG, EACH EVENING
     Route: 048
  10. PRAVASTATIN [Concomitant]
     Indication: BLOOD TRIGLYCERIDES
     Dosage: UNK UNK, EACH EVENING
     Route: 048
  11. BEZAFIBRATE [Concomitant]
     Indication: BLOOD TRIGLYCERIDES
     Dosage: UNK UNK, EACH EVENING
     Route: 048
  12. CAPTOPRIL [Concomitant]
     Indication: BLOOD PRESSURE
     Dosage: 25 MG, DAILY (1/D)
     Route: 048

REACTIONS (6)
  - ASPHYXIA [None]
  - FATIGUE [None]
  - HYPERTENSION [None]
  - MANIA [None]
  - PSYCHOTIC DISORDER [None]
  - WEIGHT INCREASED [None]
